FAERS Safety Report 25418877 (Version 1)
Quarter: 2025Q2

REPORT INFORMATION
  Report Type: Spontaneous
  Country: US (occurrence: US)
  Receive Date: 20250610
  Receipt Date: 20250610
  Transmission Date: 20250716
  Serious: Yes (Other)
  Sender: PFIZER
  Company Number: US-PFIZER INC-202500118043

PATIENT
  Age: 61 Year
  Sex: Female

DRUGS (3)
  1. IBRANCE [Suspect]
     Active Substance: PALBOCICLIB
     Indication: Breast cancer
     Route: 048
     Dates: start: 20250421
  2. FULVESTRANT [Concomitant]
     Active Substance: FULVESTRANT
  3. ITOVEBI [Concomitant]
     Active Substance: INAVOLISIB

REACTIONS (1)
  - Diabetes mellitus [Not Recovered/Not Resolved]
